FAERS Safety Report 7690568-4 (Version None)
Quarter: 2011Q3

REPORT INFORMATION
  Report Type: 
  Country: None (occurrence: None)
  Receive Date: 20110812
  Receipt Date: 20110728
  Transmission Date: 20111222
  Serious: Yes (Hospitalization)
  Sender: FDA-Public Use
  Company Number: THQ2011A04420

PATIENT
  Age: 69 Year
  Sex: Male

DRUGS (4)
  1. LIPITOR [Concomitant]
  2. ACTOS [Suspect]
     Indication: DIABETES MELLITUS
     Dosage: 45 MG (1 D) PER ORAL
     Route: 048
     Dates: end: 20110601
  3. UNSPECIFIED MEDICATION(ALL OTHER THERAPEUTIC PRODUCTS) [Concomitant]
  4. METFORMIN HYDROCHLORIDE,VILDAGLIPTIN [Concomitant]

REACTIONS (1)
  - BLADDER CANCER [None]
